FAERS Safety Report 13676507 (Version 2)
Quarter: 2017Q2

REPORT INFORMATION
  Report Type: Report from Study
  Country: US (occurrence: US)
  Receive Date: 20170622
  Receipt Date: 20170630
  Transmission Date: 20170830
  Serious: No
  Sender: FDA-Public Use
  Company Number: US-AMGEN-USASP2017093000

PATIENT
  Sex: Female

DRUGS (1)
  1. ENBREL [Suspect]
     Active Substance: ETANERCEPT
     Indication: RHEUMATOID ARTHRITIS
     Dosage: 50 MG, UNK
     Route: 065
     Dates: start: 2012, end: 2012

REACTIONS (1)
  - Drug dose omission [Unknown]

NARRATIVE: CASE EVENT DATE: 2012
